FAERS Safety Report 21036186 (Version 1)
Quarter: 2022Q3

REPORT INFORMATION
  Report Type: Spontaneous
  Country: RU (occurrence: RU)
  Receive Date: 20220701
  Receipt Date: 20220701
  Transmission Date: 20221026
  Serious: Yes (Other)
  Sender: FDA-Public Use
  Company Number: RU-TAKEDA-2022TUS039424

PATIENT
  Sex: Male

DRUGS (9)
  1. VPRIV [Suspect]
     Active Substance: VELAGLUCERASE ALFA
     Indication: Gaucher^s disease type III
     Dosage: 60 INTERNATIONAL UNIT/KILOGRAM, Q2WEEKS
     Route: 050
  2. HUMAN IMMUNOGLOBULIN G [Suspect]
     Active Substance: HUMAN IMMUNOGLOBULIN G
     Indication: Hypogammaglobulinaemia
     Dosage: UNK
     Route: 042
  3. HUMAN IMMUNOGLOBULIN G [Suspect]
     Active Substance: HUMAN IMMUNOGLOBULIN G
     Indication: Gaucher^s disease type III
  4. CEREZYME [Concomitant]
     Active Substance: IMIGLUCERASE
     Indication: Gaucher^s disease type III
     Dosage: 120 INTERNATIONAL UNIT/KILOGRAM
     Route: 065
     Dates: start: 2019
  5. CEREZYME [Concomitant]
     Active Substance: IMIGLUCERASE
     Dosage: 100 MILLIGRAM, QD
     Route: 065
  6. ZAVESCA [Concomitant]
     Active Substance: MIGLUSTAT
     Indication: Gaucher^s disease type III
     Dosage: UNK
     Route: 065
  7. CHLOROPYRAMINE [Concomitant]
     Active Substance: CHLOROPYRAMINE
  8. DEXAMETHASONE [Concomitant]
     Active Substance: DEXAMETHASONE
  9. LEVOCETIRIZINE [Concomitant]
     Active Substance: LEVOCETIRIZINE

REACTIONS (3)
  - Anaphylactic reaction [Unknown]
  - Drug intolerance [Unknown]
  - Product use in unapproved indication [Unknown]
